FAERS Safety Report 9352735 (Version 1)
Quarter: 2013Q2

REPORT INFORMATION
  Report Type: Spontaneous
  Country: US (occurrence: None)
  Receive Date: 20130614
  Receipt Date: 20130614
  Transmission Date: 20140414
  Serious: Yes (Hospitalization)
  Sender: FDA-Public Use
  Company Number: None

PATIENT
  Age: 72 Year
  Sex: Male
  Weight: 92.7 kg

DRUGS (5)
  1. CYCLOPHOSPHAMIDE [Suspect]
  2. DOXORUBICIN HYDROCHLORIDE [Suspect]
  3. ETOPOSIDE (VP-16) [Suspect]
  4. PREDNISONE [Suspect]
  5. VINCRISTINE SULFATE [Suspect]

REACTIONS (5)
  - Dehydration [None]
  - Hypotension [None]
  - Hyponatraemia [None]
  - Orthostatic hypotension [None]
  - Syncope [None]
